FAERS Safety Report 25878311 (Version 2)
Quarter: 2025Q4

REPORT INFORMATION
  Report Type: Report from Study
  Country: MY (occurrence: MY)
  Receive Date: 20251003
  Receipt Date: 20251023
  Transmission Date: 20260118
  Serious: Yes (Death, Other)
  Sender: PFIZER
  Company Number: MY-TAKEDA-2023TUS124294

PATIENT
  Age: 39 Year
  Sex: Male

DRUGS (1)
  1. ADCETRIS [Suspect]
     Active Substance: BRENTUXIMAB VEDOTIN
     Indication: Hodgkin^s disease recurrent
     Dosage: 150 MILLIGRAM
     Route: 042
     Dates: start: 20230517, end: 20241106

REACTIONS (3)
  - Hodgkin^s disease recurrent [Fatal]
  - Malignant neoplasm progression [Fatal]
  - Neutropenia [Unknown]

NARRATIVE: CASE EVENT DATE: 20250301
